FAERS Safety Report 19901813 (Version 7)
Quarter: 2022Q2

REPORT INFORMATION
  Report Type: Spontaneous
  Country: JP (occurrence: JP)
  Receive Date: 20210929
  Receipt Date: 20220610
  Transmission Date: 20220721
  Serious: Yes (Other)
  Sender: FDA-Public Use
  Company Number: JP-TAKEDA-2021TJP095175

PATIENT
  Age: 9 Decade
  Sex: Female

DRUGS (2)
  1. ALUNBRIG [Suspect]
     Active Substance: BRIGATINIB
     Indication: Non-small cell lung cancer
     Dosage: 90 MILLIGRAM
     Route: 048
     Dates: start: 20210922, end: 20211114
  2. ALUNBRIG [Suspect]
     Active Substance: BRIGATINIB
     Dosage: 60 MILLIGRAM
     Route: 048
     Dates: start: 20211115

REACTIONS (7)
  - Renal impairment [Not Recovered/Not Resolved]
  - Dementia [Unknown]
  - Metastases to central nervous system [Unknown]
  - Decreased activity [Unknown]
  - Nausea [Unknown]
  - Decreased appetite [Unknown]
  - Marasmus [Unknown]

NARRATIVE: CASE EVENT DATE: 20211115
